FAERS Safety Report 22167981 (Version 1)
Quarter: 2023Q2

REPORT INFORMATION
  Report Type: Spontaneous
  Country: US (occurrence: None)
  Receive Date: 20230401
  Receipt Date: 20230401
  Transmission Date: 20230721
  Serious: Yes (Hospitalization)
  Sender: FDA-Public Use
  Company Number: None

PATIENT
  Age: 45 Year
  Sex: Female

DRUGS (10)
  1. RAPAMUNE [Suspect]
     Active Substance: SIROLIMUS
     Indication: Cystic fibrosis lung
     Dosage: FREQUENCY : DAILY;?
     Route: 048
     Dates: start: 20220518
  2. RAPAMUNE [Suspect]
     Active Substance: SIROLIMUS
     Indication: Cystic fibrosis lung
     Dosage: FREQUENCY : DAILY;?
     Route: 048
     Dates: start: 20220706
  3. AZITHROMYCIN TAB [Concomitant]
  4. MAGNESIUM TAB [Concomitant]
  5. PRILOSEC OTC TAB [Concomitant]
  6. PROGRAF [Concomitant]
     Active Substance: TACROLIMUS
  7. TYLENOL TAB [Concomitant]
  8. VITAMIN C TAB [Concomitant]
  9. AZITHROMYCIN TAB [Concomitant]
  10. PENTOXIFYLLI TAB ER [Concomitant]

REACTIONS (1)
  - Surgery [None]

NARRATIVE: CASE EVENT DATE: 20230329
